FAERS Safety Report 10235460 (Version 1)
Quarter: 2014Q2

REPORT INFORMATION
  Report Type: Spontaneous
  Country: US (occurrence: US)
  Receive Date: 20140613
  Receipt Date: 20140613
  Transmission Date: 20141212
  Serious: Yes (Other)
  Sender: FDA-Public Use
  Company Number: US-B.I. PHARMACEUTICALS,INC./RIDGEFIELD-2014-BI-26132BP

PATIENT
  Age: 83 Year
  Sex: Female

DRUGS (7)
  1. SPIRIVA [Suspect]
     Indication: ASTHMA
     Dosage: 2 PUF
     Route: 055
     Dates: end: 20140528
  2. SPIRIVA [Suspect]
     Indication: BRONCHIECTASIS
  3. ADVAIR DISKUS [Suspect]
     Indication: ASTHMA
     Dosage: 2 PUF
     Route: 055
     Dates: end: 20140528
  4. ADVAIR DISKUS [Suspect]
     Indication: BRONCHIECTASIS
  5. DIAZIDE [Concomitant]
     Route: 065
  6. PANTOPRAZOLE [Concomitant]
     Route: 065
  7. MULTIVITAMIN [Concomitant]
     Route: 065

REACTIONS (4)
  - Skin atrophy [Not Recovered/Not Resolved]
  - Squamous cell carcinoma [Not Recovered/Not Resolved]
  - Laceration [Not Recovered/Not Resolved]
  - Off label use [Unknown]
